FAERS Safety Report 5799203-3 (Version None)
Quarter: 2008Q3

REPORT INFORMATION
  Report Type: 
  Country: None (occurrence: None)
  Receive Date: 20080702
  Receipt Date: 20080620
  Transmission Date: 20090109
  Serious: Yes (Disabling, Other)
  Sender: FDA-Public Use
  Company Number: US-PFIZER INC-2008037351

PATIENT
  Sex: Male
  Weight: 81.6 kg

DRUGS (7)
  1. VIAGRA [Suspect]
     Indication: ERECTILE DYSFUNCTION
  2. ISONIAZID [Suspect]
     Indication: TUBERCULOSIS
  3. CIALIS [Suspect]
     Indication: ERECTILE DYSFUNCTION
  4. CAPTOPRIL [Concomitant]
  5. ZESTRIL [Concomitant]
  6. RANITIDINE HCL [Concomitant]
  7. ALBUTEROL [Concomitant]
     Route: 055

REACTIONS (8)
  - BLINDNESS [None]
  - BLINDNESS TRANSIENT [None]
  - BLOOD TRIGLYCERIDES INCREASED [None]
  - DRUG INEFFECTIVE [None]
  - ERECTILE DYSFUNCTION [None]
  - MULTIPLE SCLEROSIS [None]
  - URINE ELECTROLYTES INCREASED [None]
  - VISION BLURRED [None]
